FAERS Safety Report 8078637-0 (Version None)
Quarter: 2012Q1

REPORT INFORMATION
  Report Type: 
  Country: None (occurrence: None)
  Receive Date: 20120124
  Receipt Date: 20120109
  Transmission Date: 20120608
  Serious: Yes (Other)
  Sender: FDA-Public Use
  Company Number: 2012MA000650

PATIENT
  Age: 69 Year
  Sex: Male

DRUGS (1)
  1. RAMIPRIL [Suspect]
     Indication: HYPERTENSION
     Dosage: 5 MG; QD

REACTIONS (6)
  - HEPATOSPLENOMEGALY [None]
  - DRUG RASH WITH EOSINOPHILIA AND SYSTEMIC SYMPTOMS [None]
  - EOSINOPHILIC CELLULITIS [None]
  - FACE OEDEMA [None]
  - PYREXIA [None]
  - LYMPHADENOPATHY [None]
